FAERS Safety Report 5017732-7 (Version None)
Quarter: 2006Q2

REPORT INFORMATION
  Report Type: 
  Country: None (occurrence: None)
  Receive Date: 20060605
  Receipt Date: 20060309
  Transmission Date: 20061013
  Serious: Yes (Other)
  Sender: FDA-Public Use
  Company Number: PHFR2006IE01104

PATIENT
  Age: 30 Year
  Sex: Female

DRUGS (8)
  1. CLOZARIL [Suspect]
     Indication: SCHIZOPHRENIA
     Dosage: 100-112.5MG  BD
     Route: 048
     Dates: start: 20060214, end: 20060315
  2. CLOZARIL [Suspect]
     Dosage: 100 MG, BID
     Route: 048
  3. CHLORPROMAZINE [Concomitant]
     Indication: SCHIZOPHRENIA
     Dosage: 50 MG, QD
     Route: 048
  4. OLANZAPINE [Concomitant]
     Indication: SCHIZOPHRENIA
     Dosage: 15MG OD/ 5MG MANE
     Route: 048
  5. VALPROATE SODIUM [Concomitant]
     Indication: SCHIZOPHRENIA
     Dosage: 600 MG, QD
     Route: 048
  6. ZIMOVANE [Concomitant]
     Indication: SCHIZOPHRENIA
     Dosage: 15MG/NOCTE
     Route: 048
  7. DIAZEPAM [Concomitant]
     Indication: SCHIZOPHRENIA
     Dosage: 5MG/NOCTE
     Route: 048
  8. OMAOR [Concomitant]
     Indication: SCHIZOPHRENIA
     Dosage: 2.5 MG, QD
     Route: 048

REACTIONS (4)
  - CARDIAC MURMUR [None]
  - ELECTROCARDIOGRAM QT PROLONGED [None]
  - HYPERTROPHIC CARDIOMYOPATHY [None]
  - SINUS TACHYCARDIA [None]
